FAERS Safety Report 9461407 (Version 1)
Quarter: 2013Q3

REPORT INFORMATION
  Report Type: Spontaneous
  Country: US (occurrence: None)
  Receive Date: 20130814
  Receipt Date: 20130814
  Transmission Date: 20140515
  Serious: Yes (Other)
  Sender: FDA-Public Use
  Company Number: None

PATIENT
  Age: 70 Year
  Sex: Female
  Weight: 42.18 kg

DRUGS (25)
  1. FORTEO [Suspect]
     Indication: OSTEOPOROSIS
     Dosage: 28 DAYS AFTER OPENING ?600 MCG/2.4 ML PEN 20 MCG SC QD QD INJECTION SC ?1-23-13 STILL USING, 1 QOD
     Route: 058
     Dates: start: 20130123
  2. B12 INJ. [Concomitant]
  3. FOLIC ACID [Concomitant]
  4. LASIX [Concomitant]
  5. SYNTHROID [Concomitant]
  6. CREON [Concomitant]
  7. DOMPERIDONE [Concomitant]
  8. KLOR CON [Concomitant]
  9. TRAMADOL [Concomitant]
  10. INFED IV [Concomitant]
  11. DORZOLAMIDE [Concomitant]
  12. CARAFATE [Concomitant]
  13. XALATAN [Concomitant]
  14. MIRALAX [Concomitant]
  15. MILK OF MAGNESIA [Concomitant]
  16. OCUVITE [Concomitant]
  17. MULTI-VITAMIN [Concomitant]
  18. LACTAID [Concomitant]
  19. PROBIOTIC [Concomitant]
  20. BEANO [Concomitant]
  21. GAS X [Concomitant]
  22. CLARITIN [Concomitant]
  23. SUDAFED [Concomitant]
  24. BENADRYL [Concomitant]
  25. SYSTANE [Concomitant]

REACTIONS (11)
  - Myalgia [None]
  - Bone pain [None]
  - Headache [None]
  - Asthenia [None]
  - Fatigue [None]
  - Contusion [None]
  - Confusional state [None]
  - Feeling abnormal [None]
  - Affective disorder [None]
  - Depression [None]
  - Fear [None]
